FAERS Safety Report 5824113-2 (Version None)
Quarter: 2008Q3

REPORT INFORMATION
  Report Type: 
  Country: None (occurrence: None)
  Receive Date: 20080728
  Receipt Date: 20080625
  Transmission Date: 20090109
  Serious: No
  Sender: FDA-Public Use
  Company Number: US-BAYER-200824847NA

PATIENT
  Age: 38 Year
  Sex: Female
  Weight: 131 kg

DRUGS (4)
  1. MIRENA [Suspect]
     Indication: CONTRACEPTION
     Route: 015
     Dates: start: 20080109, end: 20080530
  2. ZYRTEC [Concomitant]
     Indication: MULTIPLE ALLERGIES
  3. ZANTAC [Concomitant]
     Indication: GASTROOESOPHAGEAL REFLUX DISEASE
  4. CLARITIN [Concomitant]
     Indication: MULTIPLE ALLERGIES

REACTIONS (1)
  - IUCD COMPLICATION [None]
